FAERS Safety Report 9887396 (Version 1)
Quarter: 2014Q1

REPORT INFORMATION
  Report Type: Spontaneous
  Country: FR (occurrence: FR)
  Receive Date: 20140211
  Receipt Date: 20140211
  Transmission Date: 20141002
  Serious: Yes (Life-Threatening)
  Sender: FDA-Public Use
  Company Number: FR-009507513-1402FRA001204

PATIENT
  Age: 60 Year
  Sex: Female

DRUGS (2)
  1. INTRONA [Suspect]
     Indication: HEPATITIS C
     Dosage: 1 DF, TIW
     Dates: start: 201112, end: 201204
  2. RIBAVIRIN [Concomitant]

REACTIONS (1)
  - Lung disorder [Recovered/Resolved]
